FAERS Safety Report 7146385-7 (Version None)
Quarter: 2010Q4

REPORT INFORMATION
  Report Type: 
  Country: None (occurrence: None)
  Receive Date: 20101208
  Receipt Date: 20100312
  Transmission Date: 20110411
  Serious: No
  Sender: FDA-Public Use
  Company Number: US-BRISTOL-MYERS SQUIBB COMPANY-15019227

PATIENT
  Sex: Male

DRUGS (2)
  1. PRAVASTATIN SODIUM [Suspect]
     Indication: BLOOD CHOLESTEROL INCREASED
     Dosage: STARTED WITH 40 MG, THEN INCREASED TO 80MG AND AGAIN DECREASED TO 40 MG.
     Route: 048
  2. PLAVIX [Suspect]
     Route: 065
     Dates: start: 20090101

REACTIONS (2)
  - FEELING ABNORMAL [None]
  - FLUSHING [None]
